FAERS Safety Report 12250514 (Version 2)
Quarter: 2016Q2

REPORT INFORMATION
  Report Type: Other
  Country: US (occurrence: US)
  Receive Date: 20160408
  Receipt Date: 20160614
  Transmission Date: 20160815
  Serious: No
  Sender: FDA-Public Use
  Company Number: US-SHIRE-US201603752

PATIENT
  Age: 45 Year
  Sex: Female
  Weight: 56 kg

DRUGS (8)
  1. FIRAZYR [Suspect]
     Active Substance: ICATIBANT ACETATE
     Indication: HEREDITARY ANGIOEDEMA
     Dosage: 30 MG, AS REQ^D
     Route: 058
     Dates: start: 201510
  2. FIRAZYR [Suspect]
     Active Substance: ICATIBANT ACETATE
     Dosage: 30 MG, AS REQ^D
     Route: 058
     Dates: start: 2012
  3. ZOFRAN [Concomitant]
     Active Substance: ONDANSETRON HYDROCHLORIDE
     Indication: NAUSEA
     Dosage: 8 MG, AS REQ^D
     Route: 048
  4. CINRYZE [Concomitant]
     Active Substance: HUMAN C1-ESTERASE INHIBITOR
     Indication: HEREDITARY ANGIOEDEMA
     Dosage: 1000 UNITS, OTHER (Q 3 DAYS)
     Route: 042
     Dates: start: 201510
  5. EPIPEN [Concomitant]
     Active Substance: EPINEPHRINE
     Indication: SWELLING
     Dosage: 0.3 MG, AS REQ^D
     Route: 030
     Dates: start: 201510
  6. PREDNISONE. [Concomitant]
     Active Substance: PREDNISONE
     Indication: HEREDITARY ANGIOEDEMA
     Dosage: 20 MG, AS REQ^D
     Route: 048
  7. ZOFRAN [Concomitant]
     Active Substance: ONDANSETRON HYDROCHLORIDE
     Indication: VOMITING
  8. BENADRYL [Concomitant]
     Active Substance: DIPHENHYDRAMINE HYDROCHLORIDE
     Indication: HEREDITARY ANGIOEDEMA
     Dosage: 50 MG, AS REQ^D
     Route: 048

REACTIONS (1)
  - Injection site pain [Not Recovered/Not Resolved]

NARRATIVE: CASE EVENT DATE: 201510
